FAERS Safety Report 7091230-1 (Version None)
Quarter: 2010Q4

REPORT INFORMATION
  Report Type: 
  Country: None (occurrence: None)
  Receive Date: 20101109
  Receipt Date: 20101101
  Transmission Date: 20110411
  Serious: Yes (Hospitalization)
  Sender: FDA-Public Use
  Company Number: PHHY2010US70184

PATIENT
  Sex: Female

DRUGS (6)
  1. EXTAVIA [Suspect]
     Indication: MULTIPLE SCLEROSIS
     Dosage: 0.125 MG (0.5 ML), QOD
     Route: 058
     Dates: start: 20100927
  2. GABAPENTIN [Concomitant]
     Dosage: 300 MG, TID
  3. GABAPENTIN [Concomitant]
     Dosage: 400 MG, TID
  4. METHOCARBAMOL [Concomitant]
     Dosage: 500 MG, TID
  5. BACLOFEN [Concomitant]
     Indication: MUSCLE SPASMS
     Dosage: 10 MG, BID
     Route: 048
     Dates: start: 20100823
  6. NEURONTIN [Concomitant]
     Indication: MUSCLE SPASMS
     Dosage: 100 MG, TID
     Route: 048
     Dates: start: 20100823

REACTIONS (6)
  - BALANCE DISORDER [None]
  - GAIT DISTURBANCE [None]
  - MULTIPLE SCLEROSIS RELAPSE [None]
  - PAIN IN EXTREMITY [None]
  - SENSATION OF HEAVINESS [None]
  - VISION BLURRED [None]
